FAERS Safety Report 8600957-9 (Version None)
Quarter: 2012Q3

REPORT INFORMATION
  Report Type: 
  Country: None (occurrence: None)
  Receive Date: 20120817
  Receipt Date: 20120809
  Transmission Date: 20120928
  Serious: Yes (Other)
  Sender: FDA-Public Use
  Company Number: US-B.I. PHARMACEUTICALS,INC./RIDGEFIELD-2012-BP-01563BP

PATIENT
  Age: 81 Year
  Sex: Female

DRUGS (6)
  1. COREG [Concomitant]
     Indication: HYPERTENSION
     Dates: start: 20110101
  2. SPIRONOLACTONE [Concomitant]
     Indication: HYPERTENSION
     Dates: start: 20110101
  3. PRADAXA [Suspect]
     Indication: ATRIAL FIBRILLATION
     Dosage: 300 MG
     Route: 048
     Dates: start: 20110801
  4. MICARDIS [Suspect]
     Indication: HYPERTENSION
     Dates: start: 20070101
  5. TEKTURNA [Concomitant]
     Indication: HYPERTENSION
     Dates: start: 20070101
  6. HYDROCHLOROTHIAZIDE [Concomitant]
     Indication: HYPERTENSION
     Dates: start: 20110101

REACTIONS (3)
  - BLOOD URINE PRESENT [None]
  - INGUINAL HERNIA [None]
  - SKIN CANCER [None]
